FAERS Safety Report 19095367 (Version 1)
Quarter: 2021Q2

REPORT INFORMATION
  Report Type: Spontaneous
  Country: SI (occurrence: SI)
  Receive Date: 20210406
  Receipt Date: 20210406
  Transmission Date: 20210717
  Serious: Yes (Hospitalization)
  Sender: FDA-Public Use
  Company Number: SI-ROCHE-2798228

PATIENT
  Age: 75 Year
  Sex: Female

DRUGS (10)
  1. AMARYL [Concomitant]
     Active Substance: GLIMEPIRIDE
  2. PIRAMIL [Concomitant]
     Active Substance: RAMIPRIL
  3. FOSAVANCE [Concomitant]
     Active Substance: ALENDRONATE SODIUM\CHOLECALCIFEROL
  4. AGLURAB [Concomitant]
     Active Substance: METFORMIN HYDROCHLORIDE
     Dosage: 2X1
  5. PORTALAK [Concomitant]
     Active Substance: LACTULOSE
  6. SOBYCOR [Concomitant]
     Active Substance: BISOPROLOL FUMARATE
  7. ALECENSA [Suspect]
     Active Substance: ALECTINIB HYDROCHLORIDE
     Indication: LUNG ADENOCARCINOMA
     Dosage: 2X 300 MG
     Route: 048
     Dates: start: 20201104, end: 20210303
  8. ALECENSA [Suspect]
     Active Substance: ALECTINIB HYDROCHLORIDE
     Indication: LUNG ADENOCARCINOMA
     Dosage: 2X 600 MG
     Route: 048
     Dates: start: 20201002, end: 20201026
  9. SORTIS [Concomitant]
     Active Substance: ATORVASTATIN
  10. LEKADOL [Concomitant]
     Active Substance: ACETAMINOPHEN

REACTIONS (1)
  - Cardiac failure [Recovered/Resolved]

NARRATIVE: CASE EVENT DATE: 20201026
